FAERS Safety Report 21962627 (Version 2)
Quarter: 2023Q1

REPORT INFORMATION
  Report Type: Spontaneous
  Country: IT (occurrence: IT)
  Receive Date: 20230207
  Receipt Date: 20230217
  Transmission Date: 20230418
  Serious: Yes (Other)
  Sender: FDA-Public Use
  Company Number: IT-009507513-2302ITA001032

PATIENT
  Sex: Male
  Weight: 88 kg

DRUGS (7)
  1. PEMBROLIZUMAB [Suspect]
     Active Substance: PEMBROLIZUMAB
     Indication: Non-small cell lung cancer
     Dosage: 200 MILLIGRAM (MG), Q3W
     Dates: start: 202007, end: 2020
  2. PEMBROLIZUMAB [Suspect]
     Active Substance: PEMBROLIZUMAB
     Dosage: THE SEVENTH ADMINISTRATION
     Dates: start: 202011, end: 202011
  3. PEMBROLIZUMAB [Suspect]
     Active Substance: PEMBROLIZUMAB
     Dosage: 400 MILLIGRAM (MG), EVERY 6 WEEKS
     Dates: start: 202104, end: 2021
  4. PEMBROLIZUMAB [Suspect]
     Active Substance: PEMBROLIZUMAB
     Dosage: 13TH ADMINISTRATION
     Dates: start: 202107, end: 202107
  5. PEMBROLIZUMAB [Suspect]
     Active Substance: PEMBROLIZUMAB
     Dosage: THE 18TH ADMINISTRATION
     Dates: start: 202202, end: 202202
  6. PEMBROLIZUMAB [Suspect]
     Active Substance: PEMBROLIZUMAB
     Dosage: THE 23RD ADMINISTRATION
     Dates: start: 202210, end: 202210
  7. PEMBROLIZUMAB [Suspect]
     Active Substance: PEMBROLIZUMAB
     Dosage: 25TH ADMINISTRATION
     Dates: start: 202212, end: 202212

REACTIONS (8)
  - Lung lobectomy [Unknown]
  - Lymphadenectomy [Unknown]
  - Radiotherapy to brain [Unknown]
  - Radiotherapy to lung [Unknown]
  - Malignant neoplasm progression [Unknown]
  - Malignant neoplasm progression [Unknown]
  - Central nervous system lesion [Unknown]
  - Lymph nodes scan abnormal [Unknown]

NARRATIVE: CASE EVENT DATE: 20200801
